FAERS Safety Report 8422738-1 (Version None)
Quarter: 2012Q2

REPORT INFORMATION
  Report Type: 
  Country: None (occurrence: None)
  Receive Date: 20120608
  Receipt Date: 20120529
  Transmission Date: 20120825
  Serious: Yes (Hospitalization, Other)
  Sender: FDA-Public Use
  Company Number: ES-BRISTOL-MYERS SQUIBB COMPANY-16576654

PATIENT
  Age: 72 Year
  Sex: Male

DRUGS (5)
  1. ESOMEPRAZOLE [Suspect]
     Dosage: 1DF=40 UNITS NOT SPECIFIED
     Dates: start: 20120502
  2. AMOXICILLIN [Suspect]
     Dosage: MORNING-NIGHT.
     Dates: start: 20120502
  3. TINIDAZOLE [Suspect]
     Dosage: 1DF=500 UNITS NOT SPECIFIED, MRNG-NIGHT, TOOK ONLY ONE DOSE.
     Dates: start: 20120502
  4. SPRYCEL [Suspect]
     Indication: CHRONIC MYELOID LEUKAEMIA
     Dates: start: 20070502, end: 20120427
  5. CLARITHROMYCIN [Suspect]

REACTIONS (3)
  - COLITIS ULCERATIVE [None]
  - PLEURAL EFFUSION [None]
  - MYOPATHY TOXIC [None]
